FAERS Safety Report 16802294 (Version 1)
Quarter: 2019Q3

REPORT INFORMATION
  Report Type: Spontaneous
  Country: US (occurrence: US)
  Receive Date: 20190912
  Receipt Date: 20190912
  Transmission Date: 20191005
  Serious: No
  Sender: FDA-Public Use
  Company Number: US-SA-2019SA250507

PATIENT
  Age: 53 Year
  Sex: Female

DRUGS (1)
  1. ALLEGRA-D 24 HOUR [Suspect]
     Active Substance: FEXOFENADINE HYDROCHLORIDE\PSEUDOEPHEDRINE HYDROCHLORIDE
     Indication: HYPERSENSITIVITY
     Dosage: 180MG TO 240MG
     Route: 065

REACTIONS (4)
  - Sneezing [Unknown]
  - Rhinorrhoea [Unknown]
  - Drug ineffective [Unknown]
  - Nasal congestion [Unknown]
